FAERS Safety Report 6824882-9 (Version None)
Quarter: 2010Q3

REPORT INFORMATION
  Report Type: 
  Country: None (occurrence: None)
  Receive Date: 20100708
  Receipt Date: 20061204
  Transmission Date: 20110219
  Serious: No
  Sender: FDA-Public Use
  Company Number: US-PFIZER INC-2006151971

PATIENT
  Sex: Female
  Weight: 86.18 kg

DRUGS (5)
  1. CHANTIX [Suspect]
     Indication: SMOKING CESSATION THERAPY
     Dates: start: 20060901
  2. SYNTHROID [Concomitant]
  3. TOPROL-XL [Concomitant]
  4. CALCIUM CARBONATE [Concomitant]
  5. MULTI-VITAMINS [Concomitant]

REACTIONS (4)
  - ABNORMAL DREAMS [None]
  - FOOD CRAVING [None]
  - THIRST [None]
  - TONGUE DISORDER [None]
